FAERS Safety Report 9251926 (Version 1)
Quarter: 2013Q2

REPORT INFORMATION
  Report Type: Spontaneous
  Country: AU (occurrence: AU)
  Receive Date: 20130424
  Receipt Date: 20130424
  Transmission Date: 20140414
  Serious: Yes (Hospitalization)
  Sender: FDA-Public Use
  Company Number: AU-MYLANLABS-2013S1007947

PATIENT
  Age: 88 Year
  Sex: Female

DRUGS (1)
  1. E-MYCIN [Suspect]
     Indication: SKIN INFECTION
     Route: 048
     Dates: start: 20130322, end: 20130328

REACTIONS (1)
  - Constipation [Recovered/Resolved]
